FAERS Safety Report 19115166 (Version 1)
Quarter: 2021Q2

REPORT INFORMATION
  Report Type: Spontaneous
  Country: RU (occurrence: RU)
  Receive Date: 20210409
  Receipt Date: 20210409
  Transmission Date: 20210717
  Serious: Yes (Hospitalization, Other)
  Sender: FDA-Public Use
  Company Number: RU-AMGEN-RUSSP2021050667

PATIENT
  Age: 66 Year
  Sex: Female

DRUGS (10)
  1. GENTAMICIN. [Concomitant]
     Active Substance: GENTAMICIN
     Indication: ANTIBIOTIC THERAPY
     Dosage: 240 MILLIGRAM, QD
     Route: 065
  2. MEROPENEM. [Concomitant]
     Active Substance: MEROPENEM
     Indication: ANTIBIOTIC THERAPY
     Dosage: 1000 MILLIGRAM 3 TIMES A DAY
     Route: 065
  3. NOREPINEPHRINE. [Concomitant]
     Active Substance: NOREPINEPHRINE
     Indication: CARDIAC OUTPUT
     Dosage: 0.1 MICROGRAM/KILOGRAM PER MINUTE
     Route: 065
  4. CASPOFUNGIN [Concomitant]
     Active Substance: CASPOFUNGIN
     Dosage: UNK
     Route: 065
  5. TIGECYCLINE. [Concomitant]
     Active Substance: TIGECYCLINE
     Dosage: UNK
     Route: 065
  6. FILGRASTIM [Suspect]
     Active Substance: FILGRASTIM
     Indication: LEUKOPENIA
     Dosage: 0.5 MILLILITER, QD
     Route: 065
  7. AZTREONAM. [Concomitant]
     Active Substance: AZTREONAM
     Dosage: UNK
     Route: 065
  8. FLUCONAZOLE. [Concomitant]
     Active Substance: FLUCONAZOLE
     Indication: PROPHYLAXIS
  9. MEROPENEM. [Concomitant]
     Active Substance: MEROPENEM
     Dosage: 2000 MILLIGRAM 3 TIMES A DAY
     Route: 065
  10. LINEZOLID. [Concomitant]
     Active Substance: LINEZOLID
     Indication: ANTIBIOTIC THERAPY
     Dosage: 600 MILLIGRAM 2 TIMES A DAY
     Route: 065

REACTIONS (13)
  - Anaemia [Unknown]
  - Thrombocytopenia [Unknown]
  - Hepatic failure [Unknown]
  - Acinetobacter infection [Unknown]
  - Renal failure [Unknown]
  - Coagulopathy [Unknown]
  - Candida infection [Unknown]
  - Hypoalbuminaemia [Unknown]
  - Sepsis [Unknown]
  - Off label use [Unknown]
  - Procalcitonin increased [Recovering/Resolving]
  - C-reactive protein increased [Recovering/Resolving]
  - Blood lactic acid decreased [Unknown]

NARRATIVE: CASE EVENT DATE: 201911
